FAERS Safety Report 15988717 (Version 1)
Quarter: 2019Q1

REPORT INFORMATION
  Report Type: Spontaneous
  Country: US (occurrence: US)
  Receive Date: 20190221
  Receipt Date: 20190221
  Transmission Date: 20190418
  Serious: Yes (Other)
  Sender: FDA-Public Use
  Company Number: US-ZYDUS-034032

PATIENT
  Age: 47 Year
  Sex: Male

DRUGS (7)
  1. KRATOM [Interacting]
     Active Substance: HERBALS\MITRAGYNINE
     Indication: BACK PAIN
     Dosage: POWDER FORM
     Route: 065
  2. CLONAZEPAM. [Concomitant]
     Active Substance: CLONAZEPAM
     Indication: PRODUCT USED FOR UNKNOWN INDICATION
     Route: 065
  3. ESCITALOPRAM [Suspect]
     Active Substance: ESCITALOPRAM OXALATE
     Indication: MAJOR DEPRESSION
     Route: 065
  4. KRATOM [Interacting]
     Active Substance: HERBALS\MITRAGYNINE
     Indication: BACK PAIN
     Route: 048
  5. VALSARTAN. [Concomitant]
     Active Substance: VALSARTAN
     Indication: PRODUCT USED FOR UNKNOWN INDICATION
     Route: 065
  6. FEXOFENADINE [Concomitant]
     Active Substance: FEXOFENADINE\FEXOFENADINE HYDROCHLORIDE
     Indication: PRODUCT USED FOR UNKNOWN INDICATION
     Route: 065
  7. METOPROLOL. [Concomitant]
     Active Substance: METOPROLOL
     Indication: PRODUCT USED FOR UNKNOWN INDICATION
     Route: 065

REACTIONS (15)
  - Chromaturia [Recovered/Resolved]
  - Pyrexia [Recovered/Resolved]
  - Hyperbilirubinaemia [Recovered/Resolved]
  - Drug-induced liver injury [Recovered/Resolved]
  - Vomiting [Recovered/Resolved]
  - Micturition urgency [Recovered/Resolved]
  - Malaise [Recovered/Resolved]
  - Pruritus [Recovered/Resolved]
  - Fatigue [Recovered/Resolved]
  - Pollakiuria [Recovered/Resolved]
  - Jaundice [Recovered/Resolved]
  - Hepatic steatosis [Recovered/Resolved]
  - Potentiating drug interaction [Unknown]
  - Dysuria [Recovered/Resolved]
  - Decreased appetite [Recovered/Resolved]
